FAERS Safety Report 6267845-7 (Version None)
Quarter: 2009Q3

REPORT INFORMATION
  Report Type: 
  Country: None (occurrence: None)
  Receive Date: 20090709
  Receipt Date: 20090709
  Transmission Date: 20100115
  Serious: No
  Sender: FDA-Public Use
  Company Number: None

PATIENT
  Age: 29 Year
  Sex: Female
  Weight: 52.1637 kg

DRUGS (2)
  1. KENALOG [Suspect]
     Indication: RASH
     Dosage: 1ML - 40MG IM
     Dates: start: 20090412, end: 20090412
  2. KENALOG [Suspect]
     Indication: UPPER RESPIRATORY TRACT INFECTION
     Dosage: 1ML - 40MG IM
     Dates: start: 20090412, end: 20090412

REACTIONS (3)
  - DEPRESSION [None]
  - INJECTION SITE ATROPHY [None]
  - INJECTION SITE PAIN [None]
